FAERS Safety Report 4457967-5 (Version None)
Quarter: 2004Q3

REPORT INFORMATION
  Report Type: 
  Country: None (occurrence: None)
  Receive Date: 20040924
  Receipt Date: 20040916
  Transmission Date: 20050211
  Serious: Yes (Other)
  Sender: FDA-Public Use
  Company Number: CA-JNJFOC-20040906399

PATIENT
  Sex: Female
  Weight: 63.5 kg

DRUGS (6)
  1. TOPAMAX [Suspect]
     Route: 049
     Dates: start: 20031201
  2. AMITIPTYLLINE [Concomitant]
     Route: 049
  3. MORPHINE [Concomitant]
     Indication: PAIN
     Route: 049
  4. TEGRETOL [Concomitant]
     Indication: PAIN
     Route: 049
  5. 30/70 [Concomitant]
  6. 30/70 [Concomitant]

REACTIONS (3)
  - INTRAOCULAR PRESSURE INCREASED [None]
  - RETINAL HAEMORRHAGE [None]
  - RETINAL VASCULAR OCCLUSION [None]
